FAERS Safety Report 5320828-3 (Version None)
Quarter: 2007Q2

REPORT INFORMATION
  Report Type: 
  Country: None (occurrence: None)
  Receive Date: 20070509
  Receipt Date: 20070503
  Transmission Date: 20071010
  Serious: Yes (Hospitalization)
  Sender: FDA-Public Use
  Company Number: FR-MERCK-0705FRA00005

PATIENT
  Age: 77 Year
  Sex: Female

DRUGS (8)
  1. NOROXIN [Suspect]
     Route: 048
     Dates: start: 20070223, end: 20070226
  2. CLOMIPRAMINE HYDROCHLORIDE [Suspect]
     Indication: PSYCHOTIC DISORDER
     Route: 048
  3. TAMOXIFEN CITRATE [Suspect]
     Indication: BREAST CANCER
     Route: 048
     Dates: start: 20070224
  4. PIMOZIDE [Suspect]
     Indication: PSYCHOTIC DISORDER
     Route: 048
  5. ACENOCOUMAROL [Suspect]
     Indication: ATRIAL FIBRILLATION
     Route: 048
  6. AMIODARONE HYDROCHLORIDE [Suspect]
     Indication: ATRIAL FIBRILLATION
     Route: 048
  7. DIGOXIN [Concomitant]
     Route: 048
  8. TROPATEPINE [Concomitant]
     Route: 048

REACTIONS (1)
  - TOXIC SKIN ERUPTION [None]
